FAERS Safety Report 9056372 (Version 1)
Quarter: 2013Q1

REPORT INFORMATION
  Report Type: Report from Study
  Country: DE (occurrence: DE)
  Receive Date: 20130204
  Receipt Date: 20130204
  Transmission Date: 20140127
  Serious: Yes (Hospitalization)
  Sender: FDA-Public Use
  Company Number: DE-BRISTOL-MYERS SQUIBB COMPANY-17281957

PATIENT
  Age: 59 Year
  Sex: Male

DRUGS (16)
  1. CETUXIMAB [Suspect]
     Indication: COLORECTAL CANCER METASTATIC
     Dosage: 1DF:CALCULATED FOR 2.2 M2 INSTEAD OF 2.5M2
     Route: 042
     Dates: start: 20120716, end: 20121220
  2. IRINOTECAN HCL [Suspect]
     Indication: COLORECTAL CANCER METASTATIC
     Dosage: 1DF:CALCULATED FOR 2.2 M2 INSTEAD OF 2.5M2
     Route: 042
     Dates: start: 20120716, end: 20121220
  3. FLUOROURACIL [Suspect]
     Indication: COLORECTAL CANCER METASTATIC
     Dosage: 1DF:CALCULATED FOR 2.2 M2 INSTEAD OF 2.5M2
     Route: 042
     Dates: start: 20120716, end: 20121220
  4. FOLINIC ACID [Suspect]
     Indication: COLORECTAL CANCER METASTATIC
     Dosage: 1DF:CALCULATED FOR 2.2 M2 INSTEAD OF 2.5M2
     Route: 042
     Dates: start: 20120716, end: 20121220
  5. VERAPAMIL [Concomitant]
  6. RAMIPRIL [Concomitant]
  7. SYMBICORT [Concomitant]
     Dosage: FORMULATION-SYMBICORT 320/9,2X1 HUB
  8. ALLOPURINOL [Concomitant]
  9. BERODUAL [Concomitant]
  10. ACETYLSALICYLIC ACID [Concomitant]
  11. ENTOCORT [Concomitant]
  12. LOPERAMIDE [Concomitant]
  13. TORASEMIDE [Concomitant]
  14. PREDNISOLONE [Concomitant]
     Dosage: PREDNISOLON 10MG
  15. MUCOSOLVAN [Concomitant]
     Route: 055
  16. NOVORAPID [Concomitant]

REACTIONS (6)
  - Right ventricular failure [Recovered/Resolved]
  - Respiratory failure [Not Recovered/Not Resolved]
  - Cardiac failure [Not Recovered/Not Resolved]
  - Oedema peripheral [Not Recovered/Not Resolved]
  - Deep vein thrombosis [Recovered/Resolved]
  - Pulmonary embolism [Recovered/Resolved]
